FAERS Safety Report 7509813-0 (Version None)
Quarter: 2011Q2

REPORT INFORMATION
  Report Type: 
  Country: None (occurrence: None)
  Receive Date: 20110527
  Receipt Date: 20110518
  Transmission Date: 20111010
  Serious: Yes (Death, Life-Threatening, Hospitalization, Disabling, Other)
  Sender: FDA-Public Use
  Company Number: A0918319A

PATIENT
  Age: 89 Year
  Sex: Female

DRUGS (14)
  1. ATENOLOL [Concomitant]
  2. PROMACTA [Suspect]
     Indication: IDIOPATHIC THROMBOCYTOPENIC PURPURA
     Dosage: 50MG PER DAY
     Route: 048
     Dates: start: 20090610, end: 20110312
  3. ZOCOR [Concomitant]
  4. SYNTHROID [Concomitant]
  5. MYLANTA [Concomitant]
  6. PRILOSEC [Concomitant]
  7. CONSTIPATION DRUG [Concomitant]
  8. FOLIC ACID [Concomitant]
  9. CALCIUM CARBONATE [Concomitant]
  10. TRIAMTERENE [Concomitant]
  11. FERROUS SULFATE TAB [Concomitant]
  12. HYDROCHLOROTHIAZIDE [Concomitant]
  13. ROMIPLOSTIM [Concomitant]
     Indication: IDIOPATHIC THROMBOCYTOPENIC PURPURA
  14. DUONEB [Concomitant]
     Route: 055

REACTIONS (9)
  - ANAEMIA [None]
  - PLATELET COUNT DECREASED [None]
  - PETECHIAE [None]
  - IDIOPATHIC THROMBOCYTOPENIC PURPURA [None]
  - PNEUMONIA [None]
  - DRUG INEFFECTIVE [None]
  - HAEMORRHAGE [None]
  - CONDITION AGGRAVATED [None]
  - HYPOTENSION [None]
